FAERS Safety Report 23441381 (Version 1)
Quarter: 2024Q1

REPORT INFORMATION
  Report Type: Spontaneous
  Country: NL (occurrence: NL)
  Receive Date: 20240125
  Receipt Date: 20240125
  Transmission Date: 20240409
  Serious: Yes (Other)
  Sender: FDA-Public Use
  Company Number: None

PATIENT

DRUGS (14)
  1. FLUTICASONE PROPIONATE [Suspect]
     Active Substance: FLUTICASONE PROPIONATE
     Indication: Sinusitis
     Dosage: UNK UNK, QD (ONCE A DAY)
     Dates: start: 2020
  2. PREDNISOLONE [Suspect]
     Active Substance: PREDNISOLONE
     Indication: Product used for unknown indication
     Dosage: 1 DF (1 TABLET WHEN NEEDED)
     Dates: start: 2019
  3. BUDESONIDE [Suspect]
     Active Substance: BUDESONIDE
     Indication: Sinusitis
     Dosage: UNK (1-2 TIMES A DAY 1 DOSE)
     Dates: end: 2018
  4. FLUTICASONE PROPIONATE [Suspect]
     Active Substance: FLUTICASONE PROPIONATE
     Indication: Eczema
     Dosage: 1 DF (FACE IF NECESSARY)
     Dates: start: 20180820, end: 20210918
  5. BETAMETHASONE [Suspect]
     Active Substance: BETAMETHASONE\BETAMETHASONE DIPROPIONATE
     Indication: Eczema
     Dosage: UNK
     Dates: end: 20210918
  6. PREDNISOLONE [Suspect]
     Active Substance: PREDNISOLONE
     Indication: Product used for unknown indication
     Dosage: 1 DF (1 TABLET WHEN NEEDED)
     Dates: start: 2019
  7. TRIAMCINOLONE ACETONIDE [Suspect]
     Active Substance: TRIAMCINOLONE ACETONIDE
     Indication: Eczema
     Dosage: UNK
     Dates: start: 2017, end: 20210918
  8. BUDESONIDE [Suspect]
     Active Substance: BUDESONIDE
     Indication: Asthma
     Dosage: UNK UNK, BID (2 TIMES A DAY 1-2 INHALES)
     Dates: end: 2018
  9. DEXAMETHASONE\TOBRAMYCIN [Suspect]
     Active Substance: DEXAMETHASONE\TOBRAMYCIN
     Indication: Product used for unknown indication
     Dosage: UNK
     Dates: end: 2018
  10. ALVESCO [Suspect]
     Active Substance: CICLESONIDE
     Indication: Asthma
     Dosage: UNK UNK, BID (2 TIMES A DAY 1 INHALE)
     Dates: end: 2019
  11. ALVESCO [Suspect]
     Active Substance: CICLESONIDE
     Dosage: UNK UNK, BID (2 TIMES A DAY 1 INHALE)
     Dates: end: 2019
  12. ELIDEL [Concomitant]
     Active Substance: PIMECROLIMUS
     Indication: Product used for unknown indication
     Dosage: UNK (ONLY SHORT IN FACE)
     Dates: end: 2018
  13. AERIUS (DESLORATADINE) [Concomitant]
     Active Substance: DESLORATADINE
     Indication: Product used for unknown indication
     Dosage: 5 MG TABLET, 5 MG (MILLIGRAM)
  14. PROTOPIC [Concomitant]
     Active Substance: TACROLIMUS
     Indication: Product used for unknown indication
     Dosage: UNK (ONLY SHORT IN FACE)
     Dates: end: 2018

REACTIONS (10)
  - Steroid withdrawal syndrome [Recovering/Resolving]
  - Fatigue [Recovering/Resolving]
  - Adrenal disorder [Recovering/Resolving]
  - Skin swelling [Recovering/Resolving]
  - Skin exfoliation [Recovering/Resolving]
  - Poor quality sleep [Recovering/Resolving]
  - Erythema [Recovering/Resolving]
  - Dry skin [Recovering/Resolving]
  - Hypotension [Recovering/Resolving]
  - Temperature regulation disorder [Unknown]
